FAERS Safety Report 6356020-3 (Version None)
Quarter: 2009Q3

REPORT INFORMATION
  Report Type: 
  Country: None (occurrence: None)
  Receive Date: 20090915
  Receipt Date: 20090903
  Transmission Date: 20100115
  Serious: Yes (Other)
  Sender: FDA-Public Use
  Company Number: IT-AMGEN-US363567

PATIENT
  Sex: Male

DRUGS (3)
  1. ENBREL [Suspect]
     Indication: RHEUMATOID ARTHRITIS
     Dosage: PRE-FILLED (25 MG TWICE A WEEK)
     Route: 058
     Dates: start: 20040113, end: 20090115
  2. MEDROL [Concomitant]
     Dosage: 8 MG
     Route: 048
  3. KETOPROFEN [Concomitant]
     Indication: RHEUMATOID ARTHRITIS
     Dosage: 8 MG
     Route: 048

REACTIONS (2)
  - BURSITIS [None]
  - FISTULA [None]
